FAERS Safety Report 10572694 (Version 5)
Quarter: 2015Q3

REPORT INFORMATION
  Report Type: Report from Study
  Country: US (occurrence: US)
  Receive Date: 20141110
  Receipt Date: 20150821
  Transmission Date: 20151125
  Serious: Yes (Other)
  Sender: FDA-Public Use
  Company Number: US-BIOGENIDEC-2014BI112298

PATIENT
  Age: 49 Year
  Sex: Female

DRUGS (1)
  1. TYSABRI [Suspect]
     Active Substance: NATALIZUMAB
     Indication: MULTIPLE SCLEROSIS
     Route: 042
     Dates: start: 20110829

REACTIONS (9)
  - Multiple sclerosis relapse [Recovered/Resolved]
  - Lung neoplasm malignant [Recovered/Resolved]
  - Lower limb fracture [Recovered/Resolved]
  - Migraine [Recovered/Resolved]
  - Deep vein thrombosis [Recovered/Resolved]
  - Multiple sclerosis [Unknown]
  - Pneumonia [Recovered/Resolved]
  - Ligament sprain [Recovered/Resolved]
  - Foot fracture [Recovered/Resolved]

NARRATIVE: CASE EVENT DATE: 2014
